FAERS Safety Report 6192639-0 (Version None)
Quarter: 2009Q2

REPORT INFORMATION
  Report Type: 
  Country: None (occurrence: None)
  Receive Date: 20090518
  Receipt Date: 20090511
  Transmission Date: 20091009
  Serious: Yes (Hospitalization)
  Sender: FDA-Public Use
  Company Number: FR-JNJFOC-20090205539

PATIENT
  Age: 46 Year
  Sex: Male

DRUGS (18)
  1. OFLOXACIN [Suspect]
     Indication: ABSCESS LIMB
     Route: 048
  2. RIFADIN [Suspect]
     Route: 048
  3. RIFADIN [Suspect]
     Indication: ABSCESS LIMB
     Route: 048
  4. ORBENIN CAP [Suspect]
     Indication: ABSCESS LIMB
     Route: 065
  5. AZACTAM [Suspect]
     Indication: ABSCESS LIMB
     Route: 065
  6. FUSIDATE SODIUM [Suspect]
     Route: 065
  7. FUSIDATE SODIUM [Suspect]
     Indication: ABSCESS LIMB
     Route: 065
  8. MINISINTROM [Concomitant]
     Route: 048
  9. CORTANCYL [Concomitant]
     Route: 065
  10. PLAQUENIL [Concomitant]
     Route: 065
  11. OMEPRAZOLE [Concomitant]
     Route: 065
  12. OROCAL D3 [Concomitant]
     Route: 065
  13. ACTONEL [Concomitant]
     Route: 048
  14. INIPOMP [Concomitant]
     Route: 065
  15. MOTILIUM [Concomitant]
     Route: 065
  16. NIVAQUINE [Concomitant]
     Route: 065
  17. PYOSTACINE [Concomitant]
     Route: 065
  18. PYOSTACINE [Concomitant]
     Route: 065

REACTIONS (8)
  - ANAPHYLACTIC SHOCK [None]
  - CHOLESTASIS [None]
  - LEUKOPENIA [None]
  - NEUTROPENIA [None]
  - PYREXIA [None]
  - RASH PAPULAR [None]
  - THROMBOCYTOPENIA [None]
  - TOXIC SKIN ERUPTION [None]
